FAERS Safety Report 23302575 (Version 1)
Quarter: 2023Q4

REPORT INFORMATION
  Report Type: Spontaneous
  Country: US (occurrence: US)
  Receive Date: 20231215
  Receipt Date: 20231215
  Transmission Date: 20240110
  Serious: No
  Sender: FDA-Public Use
  Company Number: US-PFIZER INC-PV202300196929

PATIENT
  Age: 65 Year
  Sex: Female

DRUGS (2)
  1. RIFABUTIN [Suspect]
     Active Substance: RIFABUTIN
     Dosage: UNK
  2. RIFAMPIN [Suspect]
     Active Substance: RIFAMPIN
     Dosage: UNK

REACTIONS (1)
  - Drug intolerance [Unknown]
